FAERS Safety Report 7963420-4 (Version None)
Quarter: 2011Q4

REPORT INFORMATION
  Report Type: 
  Country: None (occurrence: None)
  Receive Date: 20111122
  Receipt Date: 20110810
  Transmission Date: 20120403
  Serious: No
  Sender: FDA-Public Use
  Company Number: PHHY2011US66703

PATIENT
  Sex: Female

DRUGS (13)
  1. CYMBALTA [Concomitant]
  2. VYTORIN [Concomitant]
  3. CARDIZEM LA/OLD FORM (DILTIAZEM) [Concomitant]
  4. TIZANIDINE HCL [Concomitant]
  5. FLAXSEED OIL (LINUM USITATISSIMUM SEED OIL) [Concomitant]
  6. VITAMIN D [Concomitant]
  7. CITALOPRAM HYDROBROMIDE [Concomitant]
  8. MILK THISTLE [Concomitant]
  9. GILENYA [Suspect]
     Dosage: 0.5 MG, ORAL
     Route: 048
  10. FISH OIL (FISH OIL) [Concomitant]
  11. BIOTIN (BIOTIN) [Concomitant]
  12. OSTEO BI-FLEX (CHONDROITIN SULFATE, GLUCOSAMINE HYDROCHLORIDE) [Concomitant]
  13. ALLEGRA [Concomitant]

REACTIONS (2)
  - FATIGUE [None]
  - HEADACHE [None]
